FAERS Safety Report 17276344 (Version 1)
Quarter: 2020Q1

REPORT INFORMATION
  Report Type: Spontaneous
  Country: CN (occurrence: CN)
  Receive Date: 20200116
  Receipt Date: 20200116
  Transmission Date: 20200409
  Serious: Yes (Other)
  Sender: FDA-Public Use
  Company Number: CN-ROCHE-2520393

PATIENT
  Age: 43 Year
  Sex: Female
  Weight: 64 kg

DRUGS (10)
  1. CAPECITABINE. [Concomitant]
     Active Substance: CAPECITABINE
     Indication: INVASIVE DUCTAL BREAST CARCINOMA
     Dosage: NOT COMPANY DRUG, DAY1-14
     Route: 065
     Dates: start: 201908
  2. CYCLOPHOSPHAMIDE. [Concomitant]
     Active Substance: CYCLOPHOSPHAMIDE
     Indication: INVASIVE DUCTAL BREAST CARCINOMA
     Dosage: DAY 1, 4 CYCLES EC REGIMEN
     Route: 065
     Dates: start: 201712
  3. DOCETAXEL. [Concomitant]
     Active Substance: DOCETAXEL
     Indication: INVASIVE DUCTAL BREAST CARCINOMA
     Dosage: DAY 1, TH REGIMEN
     Route: 065
     Dates: start: 201712
  4. ENTECAVIR. [Concomitant]
     Active Substance: ENTECAVIR
     Route: 048
  5. HERCEPTIN [Suspect]
     Active Substance: TRASTUZUMAB
     Indication: INVASIVE DUCTAL BREAST CARCINOMA
     Dosage: EC-TH REGIMEN
     Route: 065
     Dates: start: 201712
  6. EPIRUBICIN [Concomitant]
     Active Substance: EPIRUBICIN
     Indication: INVASIVE DUCTAL BREAST CARCINOMA
     Dosage: DAY1-2, 4 CYCLES EC REGIMEN
     Route: 065
     Dates: start: 201712
  7. HERCEPTIN [Suspect]
     Active Substance: TRASTUZUMAB
     Dosage: 2 CYCLES TH REGIMEN
     Route: 065
     Dates: start: 201805
  8. ZOLEDRONIC ACID [Concomitant]
     Active Substance: ZOLEDRONIC ACID
     Indication: PRODUCT USED FOR UNKNOWN INDICATION
     Route: 065
     Dates: start: 201808
  9. HERCEPTIN [Suspect]
     Active Substance: TRASTUZUMAB
     Dosage: 6 CYCLES
     Route: 065
     Dates: start: 201808
  10. LAPATINIB [Concomitant]
     Active Substance: LAPATINIB
     Indication: INVASIVE DUCTAL BREAST CARCINOMA
     Route: 065
     Dates: start: 201908

REACTIONS (1)
  - Hydrothorax [Unknown]

NARRATIVE: CASE EVENT DATE: 201912
